FAERS Safety Report 11012655 (Version 2)
Quarter: 2015Q4

REPORT INFORMATION
  Report Type: Spontaneous
  Country: US (occurrence: None)
  Receive Date: 20150409
  Receipt Date: 20151110
  Transmission Date: 20160304
  Serious: Yes (Other)
  Sender: FDA-Public Use
  Company Number: 2015-US-0085

PATIENT
  Age: 65 Year
  Sex: Female

DRUGS (1)
  1. SANCUSO [Suspect]
     Active Substance: GRANISETRON
     Indication: PRODUCT USED FOR UNKNOWN INDICATION
     Dosage: 3 PATCHES USED ?
     Route: 062
     Dates: start: 20150403

REACTIONS (3)
  - Product adhesion issue [None]
  - Device difficult to use [None]
  - Drug ineffective [None]

NARRATIVE: CASE EVENT DATE: 201504
